FAERS Safety Report 13105699 (Version 2)
Quarter: 2017Q1

REPORT INFORMATION
  Report Type: Spontaneous
  Country: US (occurrence: US)
  Receive Date: 20170111
  Receipt Date: 20170117
  Transmission Date: 20170428
  Serious: Yes (Other)
  Sender: FDA-Public Use
  Company Number: US-RECKITT BENCKISER HEALTHCARE INT LIMITED-RB-80560-2017

PATIENT
  Age: 72 Year
  Sex: Female

DRUGS (2)
  1. SCALPICIN MAXIMUM STRENGTH [Suspect]
     Active Substance: HYDROCORTISONE
     Indication: PRODUCT USED FOR UNKNOWN INDICATION
     Dosage: APPLIED TO SCALP COUPLE TIMES DAILY
     Route: 061
     Dates: start: 20161223
  2. METOPROLOL. [Concomitant]
     Active Substance: METOPROLOL
     Indication: PRODUCT USED FOR UNKNOWN INDICATION
     Dosage: UNK
     Route: 065

REACTIONS (5)
  - Screaming [Recovered/Resolved]
  - Confusional state [Recovered/Resolved]
  - Middle insomnia [Recovered/Resolved]
  - Hallucination [Recovered/Resolved]
  - Tremor [Recovered/Resolved]

NARRATIVE: CASE EVENT DATE: 201701
